FAERS Safety Report 4522188-4 (Version None)
Quarter: 2004Q4

REPORT INFORMATION
  Report Type: 
  Country: None (occurrence: None)
  Receive Date: 20041207
  Receipt Date: 20041119
  Transmission Date: 20050328
  Serious: Yes (Other)
  Sender: FDA-Public Use
  Company Number: 210600

PATIENT

DRUGS (1)
  1. XOLAIR [Suspect]
     Dates: start: 20040401

REACTIONS (1)
  - CARDIAC MYXOMA [None]
